FAERS Safety Report 6169727-8 (Version None)
Quarter: 2009Q2

REPORT INFORMATION
  Report Type: 
  Country: None (occurrence: None)
  Receive Date: 20090424
  Receipt Date: 20090211
  Transmission Date: 20091009
  Serious: No
  Sender: FDA-Public Use
  Company Number: ALL1-2009-00366

PATIENT
  Age: 40 Year
  Sex: Female
  Weight: 45.4 kg

DRUGS (3)
  1. VYVANSE [Suspect]
     Indication: DISTURBANCE IN ATTENTION
     Dosage: 40 MG, 1X/DAY:QD, ORAL
     Route: 048
     Dates: start: 20090211
  2. CYMBALTA [Concomitant]
  3. SYNTHROID [Concomitant]

REACTIONS (1)
  - MUSCLE TWITCHING [None]
